FAERS Safety Report 18163492 (Version 2)
Quarter: 2020Q3

REPORT INFORMATION
  Report Type: Report from Study
  Country: PK (occurrence: PK)
  Receive Date: 20200818
  Receipt Date: 20200828
  Transmission Date: 20201103
  Serious: Yes (Death, Other)
  Sender: FDA-Public Use
  Company Number: NVSC2020PK227576

PATIENT
  Age: 32 Year
  Sex: Male

DRUGS (2)
  1. TACROSAN 1MG [Suspect]
     Active Substance: TACROLIMUS
     Indication: RENAL TRANSPLANT
     Dosage: 1 MG, BID
     Route: 048
     Dates: start: 20200415
  2. TACROSAN 0.5MG [Suspect]
     Active Substance: TACROLIMUS
     Indication: RENAL TRANSPLANT
     Dosage: 1 DF, BID
     Route: 048
     Dates: start: 20200415

REACTIONS (7)
  - End stage renal disease [Unknown]
  - Urine output decreased [Unknown]
  - Confusional state [Unknown]
  - Death [Fatal]
  - Pleural effusion [Unknown]
  - Lethargy [Unknown]
  - Oedema [Unknown]

NARRATIVE: CASE EVENT DATE: 20200705
